FAERS Safety Report 9717161 (Version 2)
Quarter: 2014Q1

REPORT INFORMATION
  Report Type: Spontaneous
  Country: US (occurrence: None)
  Receive Date: 20131125
  Receipt Date: 20140115
  Transmission Date: 20141002
  Serious: Yes (Hospitalization)
  Sender: FDA-Public Use
  Company Number: 2013-US-003375

PATIENT
  Age: 17 Year
  Sex: Female
  Weight: 79.4 kg

DRUGS (6)
  1. XYREM [Suspect]
     Indication: PRODUCT USED FOR UNKNOWN INDICATION
     Route: 048
     Dates: start: 201308, end: 2013
  2. ADDERALL (AMFETAINE ASPARTATE, AMFETAMINE SULFATE, DEXAMFETAMINE SACCHARATE, DEXAMFETAMINE SULFATE) [Concomitant]
  3. DEPO-PROVERA (MEDROXYPROGESTERONE ACETATE) [Concomitant]
  4. RISPERDAL [Concomitant]
  5. ZOFRAN (ONDANSETRON HYDROCHLORIDE) [Concomitant]
  6. MIRALAX (MACROGOL) [Concomitant]

REACTIONS (2)
  - Drug abuse [None]
  - Victim of abuse [None]
